FAERS Safety Report 21175887 (Version 2)
Quarter: 2022Q4

REPORT INFORMATION
  Report Type: Report from Study
  Country: US (occurrence: US)
  Receive Date: 20220805
  Receipt Date: 20221006
  Transmission Date: 20230112
  Serious: Yes (Other)
  Sender: FDA-Public Use
  Company Number: US-NOVARTISPH-NVSC2022US175551

PATIENT
  Sex: Female

DRUGS (2)
  1. ENTRESTO [Suspect]
     Active Substance: SACUBITRIL\VALSARTAN
     Indication: Product used for unknown indication
     Dosage: 0.5 DOSAGE FORM, BID (97/103 MG 1/2 PILL)
     Route: 065
  2. ENTRESTO [Suspect]
     Active Substance: SACUBITRIL\VALSARTAN
     Dosage: 49 MG, (49/51 MG), BID
     Route: 065

REACTIONS (8)
  - Atrial fibrillation [Unknown]
  - Cardiac failure [Unknown]
  - General physical health deterioration [Unknown]
  - Fatigue [Unknown]
  - Somnolence [Unknown]
  - Flatulence [Unknown]
  - Hypotension [Unknown]
  - Wrong technique in product usage process [Unknown]
